FAERS Safety Report 6977135-2 (Version None)
Quarter: 2010Q3

REPORT INFORMATION
  Report Type: 
  Country: None (occurrence: None)
  Receive Date: 20100824
  Receipt Date: 20100611
  Transmission Date: 20110219
  Serious: No
  Sender: FDA-Public Use
  Company Number: 310443

PATIENT
  Age: 62 Year
  Sex: Female

DRUGS (4)
  1. VICTOZA [Suspect]
     Indication: TYPE 2 DIABETES MELLITUS
     Dosage: SUBCUTANEOUS
     Route: 058
     Dates: end: 20100401
  2. VICTOZA [Suspect]
     Indication: TYPE 2 DIABETES MELLITUS
     Dosage: SUBCUTANEOUS
     Route: 058
     Dates: start: 20100611
  3. RESTASIS (CICLOSPORIN) [Concomitant]
  4. METFORMIN HCL [Concomitant]

REACTIONS (4)
  - DRY EYE [None]
  - DRY MOUTH [None]
  - ORAL CANDIDIASIS [None]
  - VERTIGO [None]
